FAERS Safety Report 23957229 (Version 1)
Quarter: 2024Q2

REPORT INFORMATION
  Report Type: Spontaneous
  Country: FI (occurrence: FI)
  Receive Date: 20240610
  Receipt Date: 20240610
  Transmission Date: 20240716
  Serious: Yes (Other)
  Sender: FDA-Public Use
  Company Number: None

PATIENT
  Age: 40 Year
  Sex: Female

DRUGS (1)
  1. DROSPIRENONE [Suspect]
     Active Substance: DROSPIRENONE
     Indication: Contraception
     Dosage: 1 TBL/VRK
     Route: 048
     Dates: start: 202311, end: 202405

REACTIONS (6)
  - Mood altered [Recovering/Resolving]
  - Rhinitis [Recovering/Resolving]
  - Sleep disorder [Recovering/Resolving]
  - Arrhythmia [Recovering/Resolving]
  - Alopecia [Recovering/Resolving]
  - Dyspnoea [Recovering/Resolving]

NARRATIVE: CASE EVENT DATE: 20240201
